FAERS Safety Report 25396681 (Version 1)
Quarter: 2025Q2

REPORT INFORMATION
  Report Type: Spontaneous
  Country: US (occurrence: US)
  Receive Date: 20250604
  Receipt Date: 20250604
  Transmission Date: 20250716
  Serious: Yes (Other)
  Sender: ELI LILLY AND COMPANY
  Company Number: US-ELI_LILLY_AND_COMPANY-US202505024305

PATIENT
  Age: 68 Year
  Sex: Female
  Weight: 69.8 kg

DRUGS (2)
  1. HUMALOG [Suspect]
     Active Substance: INSULIN LISPRO
     Indication: Product used for unknown indication
     Route: 065
  2. LANTUS [Concomitant]
     Active Substance: INSULIN GLARGINE
     Indication: Product used for unknown indication

REACTIONS (6)
  - Blood glucose increased [Not Recovered/Not Resolved]
  - Malaise [Not Recovered/Not Resolved]
  - Hyperhidrosis [Not Recovered/Not Resolved]
  - Dehydration [Not Recovered/Not Resolved]
  - Feeding disorder [Not Recovered/Not Resolved]
  - Dyspnoea [Not Recovered/Not Resolved]

NARRATIVE: CASE EVENT DATE: 20250515
